FAERS Safety Report 11213664 (Version 1)
Quarter: 2015Q2

REPORT INFORMATION
  Report Type: Report from Study
  Country: CN (occurrence: CN)
  Receive Date: 20150623
  Receipt Date: 20150623
  Transmission Date: 20150821
  Serious: Yes (Other)
  Sender: FDA-Public Use
  Company Number: CN-MYLANLABS-2015M1020792

PATIENT

DRUGS (7)
  1. FOLINIC ACID [Suspect]
     Active Substance: LEUCOVORIN
     Indication: HEPATIC CANCER METASTATIC
     Dosage: 200 MG/M2 BY IV DRIP ON DAYS 1 AND 2, REPEATED EVERY 2 WEEKS,
     Route: 042
     Dates: start: 20121205
  2. ADEFOVIR [Concomitant]
     Active Substance: ADEFOVIR
     Indication: HEPATITIS
     Route: 065
     Dates: start: 20121229
  3. ENTECAVIR. [Concomitant]
     Active Substance: ENTECAVIR
     Indication: HEPATITIS
     Route: 065
     Dates: start: 20130220
  4. LAMIVUDINE. [Concomitant]
     Active Substance: LAMIVUDINE
     Indication: HEPATITIS
     Route: 048
     Dates: start: 200112
  5. FLUOROURACIL. [Suspect]
     Active Substance: FLUOROURACIL
     Indication: HEPATIC CANCER METASTATIC
     Dosage: 400 MG/M2 BY IV INJECTION ON DAYS 1 AND 2, REPEATED EVERY 2 WEEKS
     Route: 042
     Dates: start: 20121205
  6. FLUOROURACIL. [Suspect]
     Active Substance: FLUOROURACIL
     Dosage: 600 MG/M2 BY IV PUMP ON DAYS 1 AND 2, REPEATED EVERY 2 WEEKS, TOTAL OF 12 COURSES
     Route: 041
     Dates: start: 20121205
  7. OXALIPLATIN. [Suspect]
     Active Substance: OXALIPLATIN
     Indication: HEPATIC CANCER METASTATIC
     Dosage: 85 MG/M2 BY IV DRIP ON DAY 1, REPEATED EVERY 2 WEEKS
     Route: 042
     Dates: start: 20121205

REACTIONS (1)
  - Hepatitis B [Recovering/Resolving]

NARRATIVE: CASE EVENT DATE: 20130217
